FAERS Safety Report 19514601 (Version 2)
Quarter: 2021Q3

REPORT INFORMATION
  Report Type: Report from Study
  Country: KR (occurrence: KR)
  Receive Date: 20210709
  Receipt Date: 20210719
  Transmission Date: 20211014
  Serious: Yes (Hospitalization)
  Sender: FDA-Public Use
  Company Number: KR-PFIZER INC-2021818275

PATIENT
  Age: 73 Year
  Sex: Male
  Weight: 64 kg

DRUGS (6)
  1. DACOMITINIB [Suspect]
     Active Substance: DACOMITINIB
     Dosage: 30 MG, 1X/DAY
     Route: 048
     Dates: start: 20210616, end: 20210617
  2. ATACAND [Concomitant]
     Active Substance: CANDESARTAN CILEXETIL
     Indication: HYPERTENSION
     Dosage: UNK
     Route: 048
     Dates: start: 20210513, end: 20210618
  3. SIGMART [Concomitant]
     Active Substance: NICORANDIL
     Indication: HYPERTENSION
     Dosage: UNK
     Route: 048
     Dates: start: 20111018, end: 20210618
  4. LIXIANA [Concomitant]
     Active Substance: EDOXABAN TOSYLATE
     Indication: ATRIAL FIBRILLATION
     Dosage: UNK
     Route: 048
     Dates: start: 20210112, end: 20210618
  5. DACOMITINIB [Suspect]
     Active Substance: DACOMITINIB
     Indication: NON-SMALL CELL LUNG CANCER
     Dosage: 45 MG, 1X/DAY
     Route: 048
     Dates: start: 20210602, end: 20210615
  6. TORSEMIDE. [Concomitant]
     Active Substance: TORSEMIDE
     Indication: AORTIC VALVE INCOMPETENCE
     Dosage: UNK
     Route: 048
     Dates: start: 20210514, end: 20210618

REACTIONS (1)
  - Dyspnoea [Recovered/Resolved]

NARRATIVE: CASE EVENT DATE: 20210617
